FAERS Safety Report 24933790 (Version 1)
Quarter: 2025Q1

REPORT INFORMATION
  Report Type: Spontaneous
  Country: US (occurrence: US)
  Receive Date: 20250206
  Receipt Date: 20250206
  Transmission Date: 20250409
  Serious: No
  Sender: TARO
  Company Number: US-TARO PHARMACEUTICALS USA INC.-2024TAR02526

PATIENT

DRUGS (2)
  1. ADAPALENE [Suspect]
     Active Substance: ADAPALENE
     Indication: Acne
     Route: 065
  2. ADAPALENE GEL 0.1% [Suspect]
     Active Substance: ADAPALENE

REACTIONS (4)
  - Skin burning sensation [Unknown]
  - Acne [Unknown]
  - Dry skin [Unknown]
  - Acne [Unknown]
